FAERS Safety Report 25705369 (Version 3)
Quarter: 2025Q3

REPORT INFORMATION
  Report Type: Report from Study
  Country: US (occurrence: US)
  Receive Date: 20250820
  Receipt Date: 20250918
  Transmission Date: 20251020
  Serious: Yes (Other)
  Sender: SUNOVION
  Company Number: US-SMPA-2025SPA010604

PATIENT
  Age: 68 Year
  Sex: Male

DRUGS (6)
  1. ORGOVYX [Suspect]
     Active Substance: RELUGOLIX
     Indication: Prostate cancer
     Route: 048
  2. ORGOVYX [Suspect]
     Active Substance: RELUGOLIX
     Route: 048
  3. NUBEQA [Suspect]
     Active Substance: DAROLUTAMIDE
     Indication: Product used for unknown indication
     Dosage: 600 MG, BID
  4. FIRMAGON [Concomitant]
     Active Substance: DEGARELIX ACETATE
     Route: 058
  5. DECADRON [Concomitant]
     Active Substance: DEXAMETHASONE
  6. PREDNISONE [Concomitant]
     Active Substance: PREDNISONE

REACTIONS (5)
  - Clostridium difficile infection [Unknown]
  - Nasal dryness [Unknown]
  - Lip dry [Unknown]
  - Hot flush [Not Recovered/Not Resolved]
  - Insomnia [Unknown]
